FAERS Safety Report 14385496 (Version 3)
Quarter: 2019Q2

REPORT INFORMATION
  Report Type: Spontaneous
  Country: US (occurrence: US)
  Receive Date: 20180115
  Receipt Date: 20190417
  Transmission Date: 20190711
  Serious: Yes (Other)
  Sender: FDA-Public Use
  Company Number: US-SA-2016SA233740

PATIENT
  Age: 66 Year
  Sex: Female

DRUGS (14)
  1. DOCETAXEL. [Suspect]
     Active Substance: DOCETAXEL
     Indication: BREAST CANCER FEMALE
     Dosage: 110 MG 75MG-ML,Q3W
     Route: 042
     Dates: start: 20141204, end: 20141204
  2. DOCETAXEL. [Suspect]
     Active Substance: DOCETAXEL
     Dosage: 110 MG 75MG-ML, Q3W
     Route: 042
     Dates: start: 20150323, end: 20150323
  3. CLONIDINE. [Concomitant]
     Active Substance: CLONIDINE
     Dosage: UNK, UNK
     Route: 065
     Dates: start: 2001
  4. METOPROLOL TARTRATE. [Concomitant]
     Active Substance: METOPROLOL TARTRATE
     Dosage: UNK, UNK
     Route: 065
     Dates: start: 2001
  5. PROMETHAZINE [Concomitant]
     Active Substance: PROMETHAZINE\PROMETHAZINE HYDROCHLORIDE
     Dosage: UNK UNK, UNK
     Route: 065
     Dates: start: 2011
  6. TRIAMCINOLONE [Concomitant]
     Active Substance: TRIAMCINOLONE
     Dosage: UNK UNK, UNK
     Route: 065
     Dates: start: 2011
  7. ALPRAZOLAM. [Concomitant]
     Active Substance: ALPRAZOLAM
     Dosage: UNK, UNK
     Route: 065
     Dates: start: 2011
  8. CIPROFLOXACIN. [Concomitant]
     Active Substance: CIPROFLOXACIN
     Dosage: UNK UNK, UNK
     Route: 065
     Dates: start: 2011
  9. ESTRACE [Concomitant]
     Active Substance: ESTRADIOL
     Dosage: UNK UNK, UNK
     Route: 065
     Dates: start: 2011
  10. OXYCODONE AND ACETAMINOPHEN [Concomitant]
     Active Substance: ACETAMINOPHEN\OXYCODONE HYDROCHLORIDE
     Dosage: UNK UNK, UNK
     Route: 065
     Dates: start: 2011
  11. CEPHALEXIN [CEFALEXIN] [Concomitant]
     Active Substance: CEPHALEXIN
     Dosage: UNK UNK, UNK
     Dates: start: 2011
  12. SIMVASTATIN. [Concomitant]
     Active Substance: SIMVASTATIN
     Dosage: UNK UNK, UNK
     Route: 065
     Dates: start: 2011
  13. MINOCYCLINE [Concomitant]
     Active Substance: MINOCYCLINE\MINOCYCLINE HYDROCHLORIDE
     Dosage: UNK UNK, UNK
     Route: 065
     Dates: start: 2011
  14. TERAZOSIN [Concomitant]
     Active Substance: TERAZOSIN\TERAZOSIN HYDROCHLORIDE
     Dosage: UNK, UNK
     Route: 065
     Dates: start: 2001

REACTIONS (6)
  - Emotional distress [Unknown]
  - Impaired quality of life [Unknown]
  - Anxiety [Unknown]
  - Pain [Unknown]
  - Alopecia [Recovering/Resolving]
  - Psychological trauma [Unknown]

NARRATIVE: CASE EVENT DATE: 201503
